FAERS Safety Report 7344640-9 (Version None)
Quarter: 2011Q1

REPORT INFORMATION
  Report Type: 
  Country: None (occurrence: None)
  Receive Date: 20110307
  Receipt Date: 20110307
  Transmission Date: 20110831
  Serious: No
  Sender: FDA-Public Use
  Company Number: None

PATIENT
  Age: 33 Year
  Sex: Male
  Weight: 67.1324 kg

DRUGS (2)
  1. CIPROFLOXACIN HCL [Suspect]
     Indication: OVERGROWTH BACTERIAL
     Dosage: 500MG BID PO
     Route: 048
     Dates: start: 20100823, end: 20100831
  2. UNKNOWN CORTICOSTEROID [Suspect]
     Indication: ROTATOR CUFF SYNDROME
     Dosage: 1 INJECTION
     Dates: start: 20100824, end: 20100824

REACTIONS (34)
  - VISION BLURRED [None]
  - SEBORRHOEIC DERMATITIS [None]
  - PRURITUS [None]
  - PHOTOPHOBIA [None]
  - BLOOD TESTOSTERONE DECREASED [None]
  - MECHANICAL URTICARIA [None]
  - C-REACTIVE PROTEIN INCREASED [None]
  - DRUG HYPERSENSITIVITY [None]
  - PLANTAR FASCIITIS [None]
  - INSOMNIA [None]
  - ANXIETY [None]
  - BLOOD IMMUNOGLOBULIN G INCREASED [None]
  - MYALGIA [None]
  - SCAR [None]
  - MALAISE [None]
  - MYOSITIS [None]
  - ARTHRALGIA [None]
  - EYE DISORDER [None]
  - IMPAIRED WORK ABILITY [None]
  - NEURALGIA [None]
  - MYOFASCIAL PAIN SYNDROME [None]
  - FEELING ABNORMAL [None]
  - DIARRHOEA [None]
  - VISUAL FIELD DEFECT [None]
  - DANDRUFF [None]
  - ALOPECIA [None]
  - TENDON PAIN [None]
  - MUSCULAR WEAKNESS [None]
  - TENDON DISORDER [None]
  - TENDONITIS [None]
  - DRY EYE [None]
  - JOINT RANGE OF MOTION DECREASED [None]
  - SKIN DISCOLOURATION [None]
  - VERTIGO [None]
